FAERS Safety Report 24308464 (Version 1)
Quarter: 2024Q3

REPORT INFORMATION
  Report Type: Spontaneous
  Country: AU (occurrence: AU)
  Receive Date: 20240911
  Receipt Date: 20240911
  Transmission Date: 20241016
  Serious: Yes (Death, Life-Threatening, Other)
  Sender: BRISTOL MYERS SQUIBB
  Company Number: AU-BRISTOL-MYERS SQUIBB COMPANY-2024-144715

PATIENT
  Age: 79 Year
  Sex: Male

DRUGS (9)
  1. APIXABAN [Suspect]
     Active Substance: APIXABAN
     Indication: Anticoagulant therapy
     Dates: start: 20240802, end: 20240802
  2. ACORAMIDIS [Suspect]
     Active Substance: ACORAMIDIS
     Indication: Cardiac amyloidosis
     Dates: start: 20220728, end: 20240810
  3. PRAMIPEXOLE [Concomitant]
     Active Substance: PRAMIPEXOLE\PRAMIPEXOLE DIHYDROCHLORIDE
     Indication: Dyskinesia
     Route: 048
     Dates: start: 20221020
  4. FUROSEMIDE [Concomitant]
     Active Substance: FUROSEMIDE
     Indication: Oedema peripheral
     Route: 048
     Dates: start: 20221115
  5. AMIODARONE [Concomitant]
     Active Substance: AMIODARONE
     Indication: Atrial fibrillation
     Route: 048
     Dates: start: 20221114
  6. GLYCOPYRROLATE [Concomitant]
     Active Substance: GLYCOPYRROLATE
     Indication: Prostatomegaly
     Route: 042
     Dates: start: 20240731
  7. ACETAMINOPHEN [Concomitant]
     Active Substance: ACETAMINOPHEN
     Indication: Prostatomegaly
     Route: 048
     Dates: start: 20240731
  8. TRIMETHOPRIM [Concomitant]
     Active Substance: TRIMETHOPRIM
     Indication: Prostatomegaly
     Route: 048
     Dates: start: 20240801, end: 20240810
  9. LIDOCAINE 5% EXTRA [Concomitant]
     Indication: Prostatomegaly
     Dosage: SPINAL BLOCK
     Dates: start: 20240731

REACTIONS (1)
  - Cardiac amyloidosis [Fatal]

NARRATIVE: CASE EVENT DATE: 20240810
